FAERS Safety Report 17695797 (Version 1)
Quarter: 2020Q2

REPORT INFORMATION
  Report Type: Report from Study
  Country: None (occurrence: US)
  Receive Date: 20200422
  Receipt Date: 20200422
  Transmission Date: 20200714
  Serious: Yes (Other)
  Sender: FDA-Public Use
  Company Number: US-ABBVIE-20K-163-3372540-00

PATIENT
  Sex: Female

DRUGS (1)
  1. SYNTHROID [Suspect]
     Active Substance: LEVOTHYROXINE SODIUM
     Indication: PRODUCT USED FOR UNKNOWN INDICATION
     Route: 048

REACTIONS (19)
  - Spinal fusion surgery [Unknown]
  - Sinus disorder [Unknown]
  - Ovarian disorder [Unknown]
  - Rotator cuff repair [Unknown]
  - Road traffic accident [Unknown]
  - Ligament operation [Unknown]
  - Sinus disorder [Recovered/Resolved]
  - Cushing^s syndrome [Unknown]
  - Bladder repair [Unknown]
  - Pituitary tumour [Unknown]
  - Colonoscopy [Unknown]
  - Osteochondrosis [Unknown]
  - Hysterectomy [Unknown]
  - Sinus disorder [Recovered/Resolved]
  - Tonsillectomy [Unknown]
  - Arthritis [Unknown]
  - Colonoscopy [Unknown]
  - Ankle fracture [Unknown]
  - Scar [Unknown]

NARRATIVE: CASE EVENT DATE: 1958
